FAERS Safety Report 9778059 (Version 1)
Quarter: 2013Q4

REPORT INFORMATION
  Report Type: Report from Study
  Country: FI (occurrence: FI)
  Receive Date: 20131223
  Receipt Date: 20131223
  Transmission Date: 20140711
  Serious: Yes (Other)
  Sender: FDA-Public Use
  Company Number: PHHY2013FI147948

PATIENT
  Age: 26 Year
  Sex: Female

DRUGS (3)
  1. LEPONEX [Suspect]
     Indication: SCHIZOPHRENIA
     Dosage: 400 MG, PER DAY (50 MG PLUS 350 MG)
  2. LEPONEX [Suspect]
     Dosage: 75 MG, PER DAY (25 MG PLUS 50 MG)
  3. LEPONEX [Suspect]
     Dosage: 100 MG, PER DAY (50 MG PLUS 50 MG)

REACTIONS (3)
  - General physical health deterioration [Unknown]
  - Hypotension [Not Recovered/Not Resolved]
  - Dizziness [Not Recovered/Not Resolved]
